FAERS Safety Report 17472477 (Version 1)
Quarter: 2020Q1

REPORT INFORMATION
  Report Type: Spontaneous
  Country: US (occurrence: US)
  Receive Date: 20200217
  Receipt Date: 20200217
  Transmission Date: 20200409
  Serious: Yes (Hospitalization)
  Sender: FDA-Public Use
  Company Number: None

PATIENT
  Age: 60 Year
  Sex: Male

DRUGS (24)
  1. HYDROCO/APAP [Concomitant]
     Active Substance: ACETAMINOPHEN\HYDROCODONE
  2. VOTRIENT [Suspect]
     Active Substance: PAZOPANIB HYDROCHLORIDE
     Indication: NEOPLASM MALIGNANT
     Route: 048
     Dates: start: 20191025, end: 20200214
  3. PRAMIPEXOLE. [Concomitant]
     Active Substance: PRAMIPEXOLE
  4. TIROSINT [Concomitant]
     Active Substance: LEVOTHYROXINE SODIUM
  5. ELIQUIS [Concomitant]
     Active Substance: APIXABAN
  6. AMOX/K CLAV [Concomitant]
     Active Substance: AMOXICILLIN\CLAVULANATE POTASSIUM
  7. PROCHLORPER [Concomitant]
  8. LIDOCAINE PAD 5% [Concomitant]
  9. ALBUTEROL AER HFA [Concomitant]
  10. METHYPRED [Concomitant]
  11. LISINOPRIL. [Concomitant]
     Active Substance: LISINOPRIL
  12. MIRTAZAPINE. [Concomitant]
     Active Substance: MIRTAZAPINE
  13. HYDROMET SYP 5/1.5/5 [Concomitant]
  14. CEFDINIR. [Concomitant]
     Active Substance: CEFDINIR
  15. ONDANSETRON [Concomitant]
     Active Substance: ONDANSETRON
  16. AMLODIPINE [Concomitant]
     Active Substance: AMLODIPINE BESYLATE
  17. OSELTAMIVIR [Concomitant]
     Active Substance: OSELTAMIVIR
  18. METHOCARBBAM [Concomitant]
  19. GABAPENTIN. [Concomitant]
     Active Substance: GABAPENTIN
  20. POLYETH GLYC POW [Concomitant]
  21. ACETAMINOPHEN. [Concomitant]
     Active Substance: ACETAMINOPHEN
  22. MELOXICAM. [Concomitant]
     Active Substance: MELOXICAM
  23. TEMAZEPAM. [Concomitant]
     Active Substance: TEMAZEPAM
  24. DOXYCLCL HYC [Concomitant]

REACTIONS (1)
  - Hospitalisation [None]

NARRATIVE: CASE EVENT DATE: 20200214
